FAERS Safety Report 19427364 (Version 4)
Quarter: 2022Q1

REPORT INFORMATION
  Report Type: Report from Study
  Country: HK (occurrence: None)
  Receive Date: 20210616
  Receipt Date: 20220203
  Transmission Date: 20220424
  Serious: Yes (Hospitalization)
  Sender: FDA-Public Use
  Company Number: HK-ROCHE-2848860

PATIENT
  Age: 64 Year
  Sex: Male
  Weight: 56.1 kg

DRUGS (20)
  1. ATEZOLIZUMAB [Suspect]
     Active Substance: ATEZOLIZUMAB
     Indication: Hepatocellular carcinoma
     Dosage: ON 09/MAR/2021, HE RECEIVED HE MOST RECENT DOSE OF ATEZOLIZUMAB 1200 MG PRIOR TO AE/SAE ONSET
     Route: 041
     Dates: start: 20181115
  2. BEVACIZUMAB [Suspect]
     Active Substance: BEVACIZUMAB
     Indication: Hepatocellular carcinoma
     Dosage: ON 09/MAR/2021, HE RECEIVED HE MOST RECENT DOSE OF BEVACIZUMAB 955.5 MG PRIOR TO AE/SAE ONSET
     Route: 042
     Dates: start: 20181115
  3. LEVOTHYROXINE SODIUM [Concomitant]
     Active Substance: LEVOTHYROXINE SODIUM
     Indication: Hyperthyroidism
     Dates: start: 20190614
  4. NORVASC [Concomitant]
     Active Substance: AMLODIPINE BESYLATE
     Indication: Hypertension
     Dates: start: 20200225
  5. ENTECAVIR [Concomitant]
     Active Substance: ENTECAVIR
     Indication: Hepatitis B
     Dates: start: 20180905
  6. EXFORGE [Concomitant]
     Active Substance: AMLODIPINE BESYLATE\VALSARTAN
     Indication: Hypertension
     Dates: start: 20200114
  7. FAMOTIDINE [Concomitant]
     Active Substance: FAMOTIDINE
     Indication: Gastrooesophageal reflux disease
     Dates: start: 20190521
  8. HYDROCORTISONE [Concomitant]
     Active Substance: HYDROCORTISONE
     Indication: Adrenal insufficiency
     Dates: start: 20191002
  9. ANUSOL (HONG KONG) [Concomitant]
     Indication: Haemorrhoids
     Dates: start: 20201124
  10. MINERAL OIL [Concomitant]
     Active Substance: MINERAL OIL
     Indication: Rash
     Dates: start: 20201124
  11. PARAFFIN [Concomitant]
     Active Substance: PARAFFIN
     Indication: Rash
     Dates: start: 20201124
  12. CHLORPHENIRAMINE MALEATE [Concomitant]
     Active Substance: CHLORPHENIRAMINE MALEATE
     Dates: start: 20201014
  13. SYNALAR [Concomitant]
     Active Substance: FLUOCINOLONE ACETONIDE
     Indication: Pruritus
     Dates: start: 20210105
  14. MOMETASONE FUROATE [Concomitant]
     Active Substance: MOMETASONE FUROATE
     Indication: Rash
     Dates: start: 20210126
  15. FEXOFENADINE [Concomitant]
     Active Substance: FEXOFENADINE HYDROCHLORIDE
     Indication: Rash
     Dates: start: 20210126
  16. EMULSIFYING OINTMENT [Concomitant]
     Indication: Rash
     Dates: start: 20210126
  17. LACTULOSE [Concomitant]
     Active Substance: LACTULOSE
     Dates: start: 20201124
  18. VALSARTAN [Concomitant]
     Active Substance: VALSARTAN
  19. ACETAMINOPHEN [Concomitant]
     Active Substance: ACETAMINOPHEN
     Indication: Pain
     Dates: start: 20210329
  20. FUROSEMIDE [Concomitant]
     Active Substance: FUROSEMIDE
     Indication: Oedema peripheral
     Dates: start: 20210329, end: 20210401

REACTIONS (1)
  - Scrotal dermatitis [Not Recovered/Not Resolved]

NARRATIVE: CASE EVENT DATE: 20210329
